FAERS Safety Report 11397149 (Version 1)
Quarter: 2015Q3

REPORT INFORMATION
  Report Type: Spontaneous
  Country: US (occurrence: US)
  Receive Date: 20150819
  Receipt Date: 20150819
  Transmission Date: 20151125
  Serious: Yes (Hospitalization, Other)
  Sender: FDA-Public Use
  Company Number: US-BAXALTA-2015BLT001115

PATIENT
  Age: 67 Year
  Sex: Female

DRUGS (1)
  1. HYQVIA [Suspect]
     Active Substance: HUMAN IMMUNOGLOBULIN G\HYALURONIDASE RECOMBINANT HUMAN
     Indication: PRIMARY IMMUNODEFICIENCY SYNDROME
     Dosage: RAMP UP
     Route: 058
     Dates: start: 201505, end: 20150626

REACTIONS (5)
  - Deep vein thrombosis [Recovered/Resolved]
  - Malaise [Recovered/Resolved]
  - Incorrect dosage administered [Recovered/Resolved]
  - Pain in extremity [Recovered/Resolved]
  - Impaired healing [Not Recovered/Not Resolved]

NARRATIVE: CASE EVENT DATE: 20150626
